FAERS Safety Report 4693615-7 (Version None)
Quarter: 2005Q2

REPORT INFORMATION
  Report Type: 
  Country: None (occurrence: None)
  Receive Date: 20050615
  Receipt Date: 20050601
  Transmission Date: 20051028
  Serious: Yes (Hospitalization)
  Sender: FDA-Public Use
  Company Number: USA050598035

PATIENT
  Age: 60 Year
  Sex: Female

DRUGS (3)
  1. HUMULIN N [Suspect]
     Indication: DIABETES MELLITUS
     Dosage: 35 U/2 DAY
     Dates: start: 20000101, end: 20050527
  2. HUMULIN L [Suspect]
     Indication: DIABETES MELLITUS
     Dosage: 45 U DAY
     Dates: start: 20050528, end: 20050530
  3. INSULIN [Suspect]
     Dates: start: 19950101

REACTIONS (17)
  - BLOOD GLUCOSE INCREASED [None]
  - DEPRESSION [None]
  - DIFFICULTY IN WALKING [None]
  - DRUG INEFFECTIVE [None]
  - EAR INFECTION VIRAL [None]
  - EYE DISORDER [None]
  - FATIGUE [None]
  - HYPOTENSION [None]
  - INFECTION [None]
  - INFLUENZA [None]
  - INSOMNIA [None]
  - MALAISE [None]
  - PAIN IN EXTREMITY [None]
  - PERFORMANCE STATUS DECREASED [None]
  - PHARMACEUTICAL PRODUCT COMPLAINT [None]
  - STOMATITIS [None]
  - WHITE BLOOD CELL COUNT INCREASED [None]
